FAERS Safety Report 7659512-X (Version None)
Quarter: 2011Q3

REPORT INFORMATION
  Report Type: 
  Country: None (occurrence: None)
  Receive Date: 20110805
  Receipt Date: 20110727
  Transmission Date: 20111222
  Serious: Yes (Hospitalization, Other)
  Sender: FDA-Public Use
  Company Number: FR-ACTELION-A-CH2010-42108

PATIENT
  Sex: Female
  Weight: 9.5 kg

DRUGS (7)
  1. TRACLEER [Suspect]
     Dosage: 8 MG, BID
     Route: 048
     Dates: start: 20101020, end: 20110223
  2. TRACLEER [Suspect]
     Dosage: 8 MG, BID
     Route: 048
     Dates: start: 20100930, end: 20101002
  3. TRACLEER [Suspect]
     Dosage: 16 MG, BID
     Route: 048
     Dates: start: 20110224
  4. ALDACTONE [Concomitant]
  5. REVATIO [Concomitant]
  6. LASIX [Concomitant]
  7. TRACLEER [Suspect]
     Indication: PULMONARY ARTERIAL HYPERTENSION
     Dosage: 16 MG, BID
     Route: 048
     Dates: start: 20101003, end: 20101019

REACTIONS (15)
  - ANAEMIA [None]
  - CYTOMEGALOVIRUS INFECTION [None]
  - IRON DEFICIENCY [None]
  - TRANSFUSION [None]
  - PYREXIA [None]
  - MEAN CELL VOLUME ABNORMAL [None]
  - GASTROINTESTINAL DISORDER [None]
  - THROMBOCYTOPENIA [None]
  - CYTOLYTIC HEPATITIS [None]
  - ALANINE AMINOTRANSFERASE INCREASED [None]
  - HEPATOSPLENOMEGALY [None]
  - GENERAL PHYSICAL HEALTH DETERIORATION [None]
  - RESPIRATORY DISORDER [None]
  - TRANSAMINASES INCREASED [None]
  - ASPARTATE AMINOTRANSFERASE INCREASED [None]
